FAERS Safety Report 4980548-1 (Version None)
Quarter: 2006Q2

REPORT INFORMATION
  Report Type: 
  Country: None (occurrence: None)
  Receive Date: 20060424
  Receipt Date: 20050201
  Transmission Date: 20061013
  Serious: Yes (Hospitalization, Disabling, Other)
  Sender: FDA-Public Use
  Company Number: US-MERCK-0502USA00227

PATIENT
  Age: 56 Year
  Sex: Male
  Weight: 102 kg

DRUGS (2)
  1. VIOXX [Suspect]
     Indication: MYALGIA
     Route: 048
     Dates: start: 19980101, end: 20040801
  2. VIOXX [Suspect]
     Indication: PAIN
     Route: 048
     Dates: start: 19980101, end: 20040801

REACTIONS (5)
  - ARTHROPATHY [None]
  - BACK DISORDER [None]
  - LIMB INJURY [None]
  - MYOCARDIAL INFARCTION [None]
  - OVERDOSE [None]
